FAERS Safety Report 25823708 (Version 1)
Quarter: 2025Q3

REPORT INFORMATION
  Report Type: Spontaneous
  Country: US (occurrence: None)
  Receive Date: 20250918
  Receipt Date: 20250918
  Transmission Date: 20251021
  Serious: Yes (Other)
  Sender: FDA-CTU
  Company Number: None

PATIENT
  Age: 39 Year
  Sex: Female
  Weight: 122.85 kg

DRUGS (1)
  1. ZEPBOUND [Suspect]
     Active Substance: TIRZEPATIDE
     Indication: Obesity
     Route: 058
     Dates: start: 20241106, end: 20250908

REACTIONS (3)
  - Appendicitis [None]
  - Benign neuroendocrine tumour of appendix [None]
  - Carcinoid tumour in the large intestine [None]

NARRATIVE: CASE EVENT DATE: 20250908
